FAERS Safety Report 5757533-5 (Version None)
Quarter: 2008Q2

REPORT INFORMATION
  Report Type: 
  Country: None (occurrence: None)
  Receive Date: 20080603
  Receipt Date: 20080529
  Transmission Date: 20081010
  Serious: Yes (Hospitalization)
  Sender: FDA-Public Use
  Company Number: DE-GENENTECH-242386

PATIENT
  Sex: Male

DRUGS (3)
  1. RANIBIZUMAB [Suspect]
     Indication: MACULAR DEGENERATION
     Dosage: 0.3 MG, Q4W
     Route: 031
     Dates: start: 20070302
  2. EYE DROPS (UNK INGREDIENTS) [Concomitant]
     Indication: DRY EYE
  3. NEXIUM [Concomitant]
     Indication: GASTRITIS
     Dates: start: 20060101

REACTIONS (1)
  - LENS DISORDER [None]
